FAERS Safety Report 15308601 (Version 2)
Quarter: 2018Q3

REPORT INFORMATION
  Report Type: Report from Study
  Country: CA (occurrence: CA)
  Receive Date: 20180822
  Receipt Date: 20180914
  Transmission Date: 20181010
  Serious: No
  Sender: FDA-Public Use
  Company Number: CA-REGENERON PHARMACEUTICALS, INC.-2018-33900

PATIENT

DRUGS (3)
  1. EYLEA [Suspect]
     Active Substance: AFLIBERCEPT
     Indication: NEOVASCULAR AGE-RELATED MACULAR DEGENERATION
     Dosage: TOTAL DOSES AND LAST DOSE PRIOR THE EVENT NOT PROVIDED
     Route: 031
     Dates: start: 20150211
  2. EYLEA [Suspect]
     Active Substance: AFLIBERCEPT
     Dosage: UNK
     Route: 031
     Dates: start: 20180620, end: 20180620
  3. EYLEA [Suspect]
     Active Substance: AFLIBERCEPT
     Dosage: UNK
     Route: 031
     Dates: start: 20180723, end: 20180723

REACTIONS (4)
  - Vision blurred [Recovering/Resolving]
  - Eye pain [Recovered/Resolved]
  - Vision blurred [Unknown]
  - Vision blurred [Unknown]

NARRATIVE: CASE EVENT DATE: 20180723
